FAERS Safety Report 8224131-3 (Version None)
Quarter: 2012Q1

REPORT INFORMATION
  Report Type: 
  Country: None (occurrence: None)
  Receive Date: 20120319
  Receipt Date: 20120116
  Transmission Date: 20120608
  Serious: Yes (Death)
  Sender: FDA-Public Use
  Company Number: AE12-012-118

PATIENT
  Age: 59 Year
  Sex: Female

DRUGS (10)
  1. ATENOLOL [Suspect]
     Dosage: ORALLY
     Route: 048
  2. HYDROXYCHLOROQUINE SULFATE [Suspect]
     Dosage: ORALLY
  3. ENALAPRIL MALEATE [Suspect]
     Dosage: ORALLY
     Route: 048
  4. ATENOLOL [Suspect]
     Indication: PRODUCT USED FOR UNKNOWN INDICATION
     Dosage: ORALLY
     Route: 048
  5. CARBAMAZEPINE [Suspect]
     Indication: PRODUCT USED FOR UNKNOWN INDICATION
     Dosage: ORALLY
     Route: 048
  6. PREDNISONE TAB [Suspect]
     Dosage: ORALLY
     Route: 048
  7. ENALAPRIL MALEATE [Suspect]
     Indication: PRODUCT USED FOR UNKNOWN INDICATION
     Dosage: ORALLY
     Route: 048
  8. ALPRAZOLAM [Suspect]
     Dosage: ORALLY
  9. OMEPRAZOLE [Suspect]
     Dosage: ORALLY
     Route: 048
  10. BUSPIRONE HCL [Suspect]
     Dosage: ORALLY

REACTIONS (1)
  - COMPLETED SUICIDE [None]
